FAERS Safety Report 10842255 (Version 1)
Quarter: 2015Q1

REPORT INFORMATION
  Report Type: Spontaneous
  Country: US (occurrence: US)
  Receive Date: 20150220
  Receipt Date: 20150220
  Transmission Date: 20150721
  Serious: No
  Sender: FDA-Public Use
  Company Number: US-009507513-1502USA003069

PATIENT
  Age: 62 Year
  Sex: Female

DRUGS (3)
  1. SIMEPREVIR [Concomitant]
     Active Substance: SIMEPREVIR
  2. SOFOSBUVIR [Concomitant]
     Active Substance: SOFOSBUVIR
  3. REBETOL [Suspect]
     Active Substance: RIBAVIRIN
     Indication: HEPATITIS CHOLESTATIC
     Dosage: UNK
     Route: 048

REACTIONS (1)
  - Anaemia [Unknown]
